FAERS Safety Report 8953737 (Version 1)
Quarter: 2012Q4

REPORT INFORMATION
  Report Type: 
  Country: FR (occurrence: FR)
  Receive Date: 20121206
  Receipt Date: 20121206
  Transmission Date: 20130627
  Serious: Yes (Hospitalization)
  Sender: FDA-Public Use
  Company Number: FR-TEVA-373633ISR

PATIENT
  Age: 80 Year
  Sex: Male

DRUGS (2)
  1. OXALIPLATIN [Suspect]
     Indication: GALLBLADDER CANCER METASTATIC
     Dosage: 150 Milligram Daily;
     Route: 042
     Dates: start: 20121106, end: 20121106
  2. GEMCITABINE [Concomitant]
     Indication: GALLBLADDER CANCER METASTATIC
     Route: 042
     Dates: start: 20121106, end: 20121106

REACTIONS (3)
  - Loss of consciousness [Recovered/Resolved]
  - Erythema [Recovered/Resolved]
  - Urinary incontinence [Recovered/Resolved]
